FAERS Safety Report 8471881-X (Version None)
Quarter: 2012Q2

REPORT INFORMATION
  Report Type: 
  Country: None (occurrence: None)
  Receive Date: 20120627
  Receipt Date: 20120618
  Transmission Date: 20120825
  Serious: Yes (Hospitalization)
  Sender: FDA-Public Use
  Company Number: RU-JNJFOC-20120610793

PATIENT
  Sex: Female
  Weight: 2.5 kg

DRUGS (5)
  1. DARUNAVIR HYDRATE [Suspect]
     Indication: FOETAL EXPOSURE DURING PREGNANCY
     Route: 064
     Dates: start: 20100120
  2. RITONAVIR [Suspect]
     Indication: FOETAL EXPOSURE DURING PREGNANCY
     Route: 064
     Dates: start: 20101120
  3. ZIDOVUDINE [Suspect]
     Indication: FOETAL EXPOSURE DURING PREGNANCY
     Route: 064
     Dates: start: 20101120
  4. ZIDOVUDINE [Suspect]
     Route: 064
     Dates: start: 20110819
  5. ZIDOVUDINE [Suspect]
     Indication: FOETAL EXPOSURE DURING PREGNANCY
     Route: 064
     Dates: start: 20101120

REACTIONS (2)
  - HYPOXIA [None]
  - PREMATURE BABY [None]
